FAERS Safety Report 23868699 (Version 1)
Quarter: 2024Q2

REPORT INFORMATION
  Report Type: Report from Study
  Country: GB (occurrence: GB)
  Receive Date: 20240517
  Receipt Date: 20240517
  Transmission Date: 20240716
  Serious: Yes (Hospitalization)
  Sender: FDA-Public Use
  Company Number: GB-ARGENX-2024-ARGX-GB003232

PATIENT

DRUGS (1)
  1. VYVGART [Suspect]
     Active Substance: EFGARTIGIMOD ALFA-FCAB
     Indication: Muscular weakness
     Dosage: 1000 MG VIAL
     Route: 058
     Dates: start: 202305

REACTIONS (1)
  - Hospitalisation [Unknown]
